FAERS Safety Report 8119824-2 (Version None)
Quarter: 2012Q1

REPORT INFORMATION
  Report Type: 
  Country: None (occurrence: None)
  Receive Date: 20120207
  Receipt Date: 20120123
  Transmission Date: 20120608
  Serious: Yes (Hospitalization)
  Sender: FDA-Public Use
  Company Number: US-JUTA GMBH-2012-01761

PATIENT
  Age: 35 Year
  Sex: Male

DRUGS (1)
  1. METFORMIN HCL [Suspect]
     Indication: TYPE 2 DIABETES MELLITUS
     Dosage: X3 WEEKS PRIOR TO PRESENTATION
     Route: 065

REACTIONS (2)
  - PANCREATITIS ACUTE [None]
  - HEPATITIS [None]
